FAERS Safety Report 10955433 (Version 1)
Quarter: 2015Q1

REPORT INFORMATION
  Report Type: Report from Study
  Country: CZ (occurrence: CZ)
  Receive Date: 20150326
  Receipt Date: 20150326
  Transmission Date: 20150721
  Serious: Yes (Hospitalization, Other)
  Sender: FDA-Public Use
  Company Number: CZ-ROCHE-1013692

PATIENT
  Age: 67 Year
  Sex: Male
  Weight: 100 kg

DRUGS (20)
  1. HYDROCORTISONE. [Concomitant]
     Active Substance: HYDROCORTISONE
     Indication: PROPHYLAXIS
     Route: 042
     Dates: start: 20111104, end: 20111104
  2. HYDROCORTISONE. [Concomitant]
     Active Substance: HYDROCORTISONE
     Route: 042
     Dates: start: 20111111, end: 20111111
  3. DOXORUBICIN [Suspect]
     Active Substance: DOXORUBICIN
     Indication: DIFFUSE LARGE B-CELL LYMPHOMA
     Dosage: LAST DOSE PRIOR TO SAE: 04 NOV 2011
     Route: 042
     Dates: start: 20111104, end: 20111104
  4. VINCRISTINE [Suspect]
     Active Substance: VINCRISTINE
     Indication: DIFFUSE LARGE B-CELL LYMPHOMA
     Dosage: LAST DATE PRIOR TO SAE: 04 NOV 2011
     Route: 042
     Dates: start: 20111104, end: 20111104
  5. PREDNISONE. [Suspect]
     Active Substance: PREDNISONE
     Indication: DIFFUSE LARGE B-CELL LYMPHOMA
     Dosage: LAST DOSE PRIOR TO SAE: 08 NOV 2011
     Route: 048
     Dates: start: 20111104, end: 20111108
  6. NOVALGIN (CZECH REPUBLIC) [Concomitant]
     Indication: INFUSION RELATED REACTION
     Route: 065
     Dates: start: 20111104, end: 20111104
  7. MILURIT [Concomitant]
     Active Substance: ALLOPURINOL
     Indication: PROPHYLAXIS
     Route: 065
     Dates: start: 20111104, end: 20120415
  8. KALNORMIN [Concomitant]
     Active Substance: POTASSIUM CHLORIDE
     Indication: PROPHYLAXIS
     Route: 065
     Dates: start: 20111117, end: 20111117
  9. ONDEMET [Concomitant]
     Indication: PROPHYLAXIS
     Route: 065
     Dates: start: 20111104, end: 20111104
  10. SOLU-MEDROL [Concomitant]
     Active Substance: METHYLPREDNISOLONE SODIUM SUCCINATE
     Indication: INFUSION RELATED REACTION
     Route: 065
     Dates: start: 20111104, end: 20111104
  11. OBINUTUZUMAB [Suspect]
     Active Substance: OBINUTUZUMAB
     Route: 042
     Dates: start: 20111111
  12. DITHIADEN [Concomitant]
     Active Substance: BISULEPIN
     Indication: PROPHYLAXIS
     Route: 065
     Dates: start: 20111104, end: 20111104
  13. CYCLOPHOSPHAMIDE. [Suspect]
     Active Substance: CYCLOPHOSPHAMIDE
     Indication: DIFFUSE LARGE B-CELL LYMPHOMA
     Dosage: LAST DOSE PRIOR TO SAE: 04 NOV 2011
     Route: 042
     Dates: start: 20111104, end: 20111104
  14. DEGAN [Concomitant]
     Active Substance: METOCLOPRAMIDE HYDROCHLORIDE
     Indication: PROPHYLAXIS
     Route: 065
     Dates: start: 20111104, end: 20111104
  15. LACTULOSE. [Concomitant]
     Active Substance: LACTULOSE
     Indication: HAEMORRHOIDS
     Route: 065
     Dates: start: 20111113, end: 20111113
  16. HELICID [Concomitant]
     Indication: PROPHYLAXIS
     Route: 065
     Dates: start: 20111104, end: 20120415
  17. DITHIADEN [Concomitant]
     Active Substance: BISULEPIN
     Route: 065
     Dates: start: 20111111, end: 20111111
  18. OBINUTUZUMAB [Suspect]
     Active Substance: OBINUTUZUMAB
     Indication: DIFFUSE LARGE B-CELL LYMPHOMA
     Dosage: CONCENTRATION: 4MG/ML, VOLUME 250 ML, LAST DOSE PRIOR TO SAE: 04 NOV 2011
     Route: 042
     Dates: start: 20111104, end: 20111104
  19. PARALEN [Concomitant]
     Active Substance: ACETAMINOPHEN
     Indication: PROPHYLAXIS
     Route: 065
     Dates: start: 20111104, end: 20111104
  20. ESSENTIAL FORTE (POLYENEPHOSPHATIDYL CHOLINE) [Concomitant]
     Indication: TRANSAMINASES INCREASED
     Route: 065
     Dates: start: 20111111, end: 20120309

REACTIONS (2)
  - Odynophagia [Recovered/Resolved]
  - Enterobacter infection [Unknown]

NARRATIVE: CASE EVENT DATE: 20111110
